FAERS Safety Report 7411605-8 (Version None)
Quarter: 2011Q2

REPORT INFORMATION
  Report Type: 
  Country: None (occurrence: None)
  Receive Date: 20110413
  Receipt Date: 20101005
  Transmission Date: 20111010
  Serious: Yes (Other)
  Sender: FDA-Public Use
  Company Number: US-BRISTOL-MYERS SQUIBB COMPANY-15300650

PATIENT
  Age: 51 Year
  Sex: Male

DRUGS (4)
  1. FOLINIC ACID [Suspect]
     Indication: COLON CANCER
     Route: 042
     Dates: start: 20100215
  2. IRINOTECAN HCL [Suspect]
     Indication: COLON CANCER
     Route: 042
     Dates: start: 20100215
  3. ERBITUX [Suspect]
     Indication: COLON CANCER
     Route: 042
     Dates: start: 20100215
  4. FLUOROURACIL [Suspect]
     Indication: COLON CANCER
     Route: 042
     Dates: start: 20100215

REACTIONS (2)
  - BLOOD MAGNESIUM DECREASED [None]
  - NEOPLASM MALIGNANT [None]
